FAERS Safety Report 8866052 (Version 1)
Quarter: 2012Q4

REPORT INFORMATION
  Report Type: 
  Country: US (occurrence: US)
  Receive Date: 20121025
  Receipt Date: 20121025
  Transmission Date: 20130627
  Serious: Yes (Other)
  Sender: FDA-Public Use
  Company Number: US-BAYER-2012-109495

PATIENT
  Age: 61 Year
  Sex: Female
  Weight: 75 kg

DRUGS (4)
  1. BAYER ADVANCED ASPIRIN EXTRA STRENGTH [Suspect]
     Dosage: bottle count 20s
     Route: 048
     Dates: start: 20121014, end: 20121014
  2. ASPIRIN [Concomitant]
     Dosage: 1 DF, QD
  3. VITAMINS [Concomitant]
  4. THROAT LOZENGE WITH ZINC [Concomitant]

REACTIONS (9)
  - Foreign body [Recovered/Resolved]
  - Vomiting [Recovered/Resolved]
  - Throat irritation [Not Recovered/Not Resolved]
  - Dysphagia [Recovered/Resolved]
  - Speech disorder [Recovered/Resolved]
  - Dysphonia [None]
  - Ear discomfort [Recovered/Resolved]
  - Chemical burn of respiratory tract [Not Recovered/Not Resolved]
  - Oropharyngeal pain [Not Recovered/Not Resolved]
